FAERS Safety Report 22284195 (Version 4)
Quarter: 2023Q2

REPORT INFORMATION
  Report Type: Report from Study
  Country: US (occurrence: US)
  Receive Date: 20230504
  Receipt Date: 20230616
  Transmission Date: 20230722
  Serious: No
  Sender: FDA-Public Use
  Company Number: US-AGIOS-2304US03341

PATIENT
  Sex: Female

DRUGS (1)
  1. MITAPIVAT [Suspect]
     Active Substance: MITAPIVAT
     Indication: Hereditary haemolytic anaemia
     Dosage: 5 MILLIGRAM
     Route: 065
     Dates: start: 20230417

REACTIONS (18)
  - Headache [Recovered/Resolved]
  - Arthralgia [Unknown]
  - Breast tenderness [Unknown]
  - Urinary tract infection [Unknown]
  - Chest pain [Not Recovered/Not Resolved]
  - Eye pruritus [Unknown]
  - Back pain [Unknown]
  - Dyspepsia [Unknown]
  - Hypersensitivity [Unknown]
  - Hordeolum [Unknown]
  - Haemoglobin decreased [Unknown]
  - Tinnitus [Not Recovered/Not Resolved]
  - Pain [Not Recovered/Not Resolved]
  - Anxiety [Unknown]
  - Headache [Unknown]
  - Musculoskeletal pain [Unknown]
  - Oropharyngeal pain [Not Recovered/Not Resolved]
  - Ear pain [Unknown]
